FAERS Safety Report 14141515 (Version 2)
Quarter: 2017Q4

REPORT INFORMATION
  Report Type: Spontaneous
  Country: PL (occurrence: PL)
  Receive Date: 20171030
  Receipt Date: 20171101
  Transmission Date: 20180321
  Serious: Yes (Hospitalization)
  Sender: FDA-Public Use
  Company Number: PHHY2017PL155917

PATIENT
  Age: 14 Year
  Sex: Male

DRUGS (1)
  1. CEFUROXIME. [Suspect]
     Active Substance: CEFUROXIME
     Indication: PNEUMONIA
     Dosage: UNK
     Route: 065

REACTIONS (5)
  - Cardiovascular disorder [Unknown]
  - Meningococcal infection [Unknown]
  - Product use in unapproved indication [Unknown]
  - General physical health deterioration [Unknown]
  - Pyrexia [Unknown]
